FAERS Safety Report 26055872 (Version 1)
Quarter: 2025Q4

REPORT INFORMATION
  Report Type: Report from Study
  Country: US (occurrence: US)
  Receive Date: 20251118
  Receipt Date: 20251118
  Transmission Date: 20260118
  Serious: Yes (Hospitalization, Other)
  Sender: ABBVIE
  Company Number: US-ABBVIE-6358799

PATIENT
  Age: 27 Year
  Sex: Female

DRUGS (3)
  1. RINVOQ [Suspect]
     Active Substance: UPADACITINIB
     Indication: Colitis ulcerative
     Dosage: STRENGTH: 30MG
     Route: 048
     Dates: start: 202412
  2. RINVOQ [Suspect]
     Active Substance: UPADACITINIB
     Indication: Colitis ulcerative
     Dosage: STRENGTH: 30MG
     Route: 048
     Dates: start: 2025
  3. RINVOQ [Suspect]
     Active Substance: UPADACITINIB
     Indication: Colitis ulcerative
     Dosage: MISSED DOSE
     Route: 048

REACTIONS (7)
  - Appendicitis [Unknown]
  - Abdominal pain [Recovered/Resolved]
  - Muscle spasms [Unknown]
  - Insomnia [Unknown]
  - Salmonellosis [Unknown]
  - Incision site pain [Not Recovered/Not Resolved]
  - Defaecation urgency [Unknown]

NARRATIVE: CASE EVENT DATE: 20250601
